FAERS Safety Report 23825876 (Version 2)
Quarter: 2024Q2

REPORT INFORMATION
  Report Type: Report from Study
  Country: CA (occurrence: CA)
  Receive Date: 20240507
  Receipt Date: 20240620
  Transmission Date: 20240716
  Serious: Yes (Hospitalization, Other)
  Sender: FDA-Public Use
  Company Number: CA-BAUSCH-BL-2024-006999

PATIENT
  Age: 45 Year
  Sex: Male

DRUGS (4)
  1. CONTRAVE [Suspect]
     Active Substance: BUPROPION HYDROCHLORIDE\NALTREXONE HYDROCHLORIDE
     Indication: Weight control
     Dosage: 90/8 MG
     Route: 048
     Dates: start: 2023, end: 2023
  2. CONTRAVE [Suspect]
     Active Substance: BUPROPION HYDROCHLORIDE\NALTREXONE HYDROCHLORIDE
     Dosage: 90/8 MG, 4 TAB/DAY
     Route: 048
     Dates: start: 20231020
  3. MORPHINE [Interacting]
     Active Substance: MORPHINE
     Indication: Biliary colic
     Dosage: UNK
     Route: 065
     Dates: start: 20240415, end: 20240415
  4. SAXENDA [Concomitant]
     Active Substance: LIRAGLUTIDE
     Indication: Weight control
     Dosage: 1 IN 1 D
     Route: 058
     Dates: start: 20230929

REACTIONS (10)
  - Cholelithiasis [Unknown]
  - Biliary colic [Unknown]
  - Abnormal loss of weight [Unknown]
  - Weight increased [Unknown]
  - Vision blurred [Recovered/Resolved]
  - Presyncope [Unknown]
  - Contraindicated product administered [Unknown]
  - Labelled drug-drug interaction issue [Unknown]
  - Contraindicated product prescribed [Unknown]
  - Intercepted product prescribing error [Unknown]

NARRATIVE: CASE EVENT DATE: 20240415
